FAERS Safety Report 7811330-5 (Version None)
Quarter: 2011Q4

REPORT INFORMATION
  Report Type: 
  Country: None (occurrence: None)
  Receive Date: 20111013
  Receipt Date: 20111006
  Transmission Date: 20120403
  Serious: Yes (Hospitalization, Other)
  Sender: FDA-Public Use
  Company Number: US-PFIZER INC-2011240094

PATIENT
  Age: 33 Year
  Sex: Female

DRUGS (13)
  1. RIFAMPICIN [Interacting]
     Indication: STAPHYLOCOCCAL INFECTION
     Dosage: 600 MG, 1X/DAY
     Dates: start: 19970419, end: 19970801
  2. FAMOTIDINE [Concomitant]
     Dosage: 20 MG, 1X/DAY
  3. BUMETANIDE [Concomitant]
     Dosage: 2 MG, 1X/DAY
  4. METOPROLOL [Concomitant]
     Dosage: 75 MG, 2X/DAY
  5. LOSARTAN [Concomitant]
     Dosage: 50 MG, 1X/DAY
  6. MAGNESIUM OXIDE [Concomitant]
     Dosage: 400 MG, 2X/DAY
  7. DIGOXIN [Concomitant]
     Dosage: 0.125 MG, 1X/DAY
  8. HYDRALAZINE [Concomitant]
     Dosage: 25 MG, 3X/DAY
  9. POTASSIUM CHLORIDE [Suspect]
     Dosage: 32 MEQ TWICE DAILY
  10. AMIODARONE HCL [Interacting]
     Indication: ARRHYTHMIA SUPRAVENTRICULAR
     Dosage: 400 MG, 1X/DAY
     Dates: start: 19830101
  11. AMIODARONE HCL [Interacting]
     Indication: VENTRICULAR ARRHYTHMIA
  12. ISOSORBIDE DINITRATE [Concomitant]
     Dosage: 40 MG, 3X/DAY
  13. DOXYCYCLINE [Concomitant]
     Indication: STAPHYLOCOCCAL INFECTION
     Dosage: 200 MG, 1X/DAY
     Dates: start: 19970401

REACTIONS (3)
  - PALPITATIONS [None]
  - HYPOTHYROIDISM [None]
  - DRUG INTERACTION [None]
